FAERS Safety Report 9818970 (Version 1)
Quarter: 2014Q1

REPORT INFORMATION
  Report Type: Report from Study
  Country: CA (occurrence: CA)
  Receive Date: 20140115
  Receipt Date: 20140115
  Transmission Date: 20141002
  Serious: Yes (Hospitalization)
  Sender: FDA-Public Use
  Company Number: CA-JNJFOC-20140104757

PATIENT
  Age: 32 Year
  Sex: Male
  Weight: 100 kg

DRUGS (6)
  1. REMICADE [Suspect]
     Indication: COLITIS ULCERATIVE
     Dosage: INDUCTION DOSE THEN TO REASSESS DOSE.
     Route: 042
     Dates: start: 20131206, end: 20131219
  2. IMURAN [Concomitant]
     Route: 065
  3. PREDNISONE [Concomitant]
     Route: 065
  4. SALOFALK [Concomitant]
     Route: 065
  5. VITAMIN D [Concomitant]
     Route: 065
  6. CALCIUM [Concomitant]
     Route: 065

REACTIONS (4)
  - C-reactive protein increased [Unknown]
  - Vomiting [Unknown]
  - Nausea [Unknown]
  - Pyrexia [Unknown]
